FAERS Safety Report 10268474 (Version 4)
Quarter: 2014Q4

REPORT INFORMATION
  Report Type: Spontaneous
  Country: ES (occurrence: ES)
  Receive Date: 20140630
  Receipt Date: 20141107
  Transmission Date: 20150528
  Serious: Yes (Other)
  Sender: FDA-Public Use
  Company Number: ES-VERTEX PHARMACEUTICALS INC-2014-000775

PATIENT

DRUGS (14)
  1. LAMIVUDINE. [Concomitant]
     Active Substance: LAMIVUDINE
     Indication: ANTIVIRAL TREATMENT
     Route: 065
  2. TENOFOVIR [Concomitant]
     Active Substance: TENOFOVIR
     Indication: ANTIVIRAL TREATMENT
     Route: 065
  3. ETRAVIRINE [Concomitant]
     Active Substance: ETRAVIRINE
     Indication: ANTIVIRAL TREATMENT
     Route: 065
  4. CYCLOSPORINE. [Concomitant]
     Active Substance: CYCLOSPORINE
     Indication: IMMUNOSUPPRESSION
     Route: 065
  5. EMTRICITABINE [Concomitant]
     Active Substance: EMTRICITABINE
     Indication: ANTIVIRAL TREATMENT
     Route: 065
  6. RALTEGRAVIR [Concomitant]
     Active Substance: RALTEGRAVIR
     Indication: ANTIVIRAL TREATMENT
     Route: 065
  7. PREDNISONE. [Concomitant]
     Active Substance: PREDNISONE
     Indication: IMMUNOSUPPRESSION
     Route: 065
  8. SIROLIMUS. [Concomitant]
     Active Substance: SIROLIMUS
     Indication: IMMUNOSUPPRESSION
     Route: 065
  9. RIBAVIRIN. [Suspect]
     Active Substance: RIBAVIRIN
     Indication: HEPATITIS C
     Dosage: UNK
     Route: 065
     Dates: start: 2012
  10. PEGYLATED INTERFERON NOS [Suspect]
     Active Substance: PEGINTERFERON ALFA-2A OR PEGINTERFERON ALFA-2B OR PEGINTERFERON BETA-1A OR PEGINTERFERON LAMBDA-1A
     Indication: HEPATITIS C
     Dosage: DOSAGE FORM: UNSPECIFIED
     Route: 065
     Dates: start: 2012
  11. ATAZANAVIR [Concomitant]
     Active Substance: ATAZANAVIR
     Indication: ANTIVIRAL TREATMENT
     Route: 065
  12. INCIVO [Suspect]
     Active Substance: TELAPREVIR
     Indication: HEPATITIS C
     Route: 048
     Dates: start: 2012
  13. ABACAVIR [Concomitant]
     Active Substance: ABACAVIR
     Indication: ANTIVIRAL TREATMENT
     Route: 065
  14. TACROLIMUS. [Concomitant]
     Active Substance: TACROLIMUS
     Indication: IMMUNOSUPPRESSION
     Route: 065

REACTIONS (9)
  - Toxicity to various agents [Unknown]
  - Drug intolerance [Unknown]
  - Haematotoxicity [Unknown]
  - Skin toxicity [Unknown]
  - Hepatotoxicity [Unknown]
  - Thrombocytopenia [Unknown]
  - Blood albumin decreased [Unknown]
  - Off label use [Unknown]
  - Drug ineffective [Unknown]
